FAERS Safety Report 8848087 (Version 2)
Quarter: 2015Q3

REPORT INFORMATION
  Report Type: Report from Study
  Country: US (occurrence: US)
  Receive Date: 20121018
  Receipt Date: 20150817
  Transmission Date: 20151125
  Serious: Yes (Other)
  Sender: FDA-Public Use
  Company Number: US-ROCHE-1132883

PATIENT
  Age: 13 Year
  Sex: Male

DRUGS (12)
  1. PROTROPIN [Suspect]
     Active Substance: SOMATREM
     Route: 058
  2. PROTROPIN [Suspect]
     Active Substance: SOMATREM
     Route: 058
  3. PROTROPIN [Suspect]
     Active Substance: SOMATREM
     Route: 058
  4. LUPRON DEPOT [Concomitant]
     Active Substance: LEUPROLIDE ACETATE
     Route: 065
     Dates: start: 199903, end: 199910
  5. PROTROPIN [Suspect]
     Active Substance: SOMATREM
     Route: 058
  6. PROTROPIN [Suspect]
     Active Substance: SOMATREM
     Indication: GROWTH HORMONE DEFICIENCY
     Dosage: DILUTE WITH 2 ML
     Route: 058
  7. PROTROPIN [Suspect]
     Active Substance: SOMATREM
     Route: 058
  8. PROTROPIN [Suspect]
     Active Substance: SOMATREM
     Route: 058
  9. PROTROPIN [Suspect]
     Active Substance: SOMATREM
     Route: 058
  10. PROTROPIN [Suspect]
     Active Substance: SOMATREM
     Indication: DWARFISM
     Route: 058
     Dates: start: 19900912
  11. PROTROPIN [Suspect]
     Active Substance: SOMATREM
     Route: 058
  12. PROTROPIN [Suspect]
     Active Substance: SOMATREM
     Route: 058

REACTIONS (5)
  - Tooth infection [Unknown]
  - Nasopharyngitis [Unknown]
  - Testicular disorder [Unknown]
  - Bronchitis [Recovered/Resolved]
  - Wheezing [Unknown]

NARRATIVE: CASE EVENT DATE: 199901
